FAERS Safety Report 8289282-6 (Version None)
Quarter: 2012Q2

REPORT INFORMATION
  Report Type: 
  Country: None (occurrence: None)
  Receive Date: 20120412
  Receipt Date: 20120410
  Transmission Date: 20120825
  Serious: Yes (Hospitalization, Other)
  Sender: FDA-Public Use
  Company Number: ADR-2009-7038

PATIENT
  Sex: Male

DRUGS (1)
  1. LIORESAL [Suspect]
     Indication: MUSCLE SPASTICITY
     Dosage: UNK MCG, DAILY, INTRATH
     Route: 037

REACTIONS (24)
  - OEDEMA PERIPHERAL [None]
  - WITHDRAWAL SYNDROME [None]
  - ARTHRALGIA [None]
  - POLYDIPSIA [None]
  - HYPOAESTHESIA ORAL [None]
  - FACIAL PARESIS [None]
  - CONDITION AGGRAVATED [None]
  - DEVICE COMPUTER ISSUE [None]
  - MUSCLE SPASMS [None]
  - DEVICE CONNECTION ISSUE [None]
  - DEPRESSED LEVEL OF CONSCIOUSNESS [None]
  - LYMPHOEDEMA [None]
  - PAIN IN EXTREMITY [None]
  - MUSCULAR WEAKNESS [None]
  - HYPOTENSION [None]
  - DEVICE OCCLUSION [None]
  - MUSCLE ATROPHY [None]
  - CEREBROVASCULAR ACCIDENT [None]
  - BLOOD SODIUM DECREASED [None]
  - HYPOTONIA [None]
  - DIPLEGIA [None]
  - NO THERAPEUTIC RESPONSE [None]
  - MEDICAL DEVICE COMPLICATION [None]
  - OVERDOSE [None]
